FAERS Safety Report 4611032-2 (Version None)
Quarter: 2005Q1

REPORT INFORMATION
  Report Type: 
  Country: None (occurrence: None)
  Receive Date: 20050317
  Receipt Date: 20050314
  Transmission Date: 20050727
  Serious: Yes (Other)
  Sender: FDA-Public Use
  Company Number: 200510528DE

PATIENT
  Sex: Female
  Weight: 66 kg

DRUGS (2)
  1. CLEXANE [Suspect]
     Indication: PROPHYLAXIS
     Route: 058
  2. MARCUMAR [Suspect]

REACTIONS (4)
  - ABORTION [None]
  - DRUG EXPOSURE DURING PREGNANCY [None]
  - INTRA-UTERINE DEATH [None]
  - PREGNANCY [None]
